FAERS Safety Report 15507121 (Version 1)
Quarter: 2018Q4

REPORT INFORMATION
  Report Type: Spontaneous
  Country: US (occurrence: US)
  Receive Date: 20181016
  Receipt Date: 20181016
  Transmission Date: 20190205
  Serious: Yes (Hospitalization, Disabling)
  Sender: FDA-Public Use
  Company Number: US-BAYER-2018-187865

PATIENT
  Sex: Female

DRUGS (1)
  1. COPPERTONE SPORT SPF 30 SPRAY [Suspect]
     Active Substance: AVOBENZONE\HOMOSALATE\OCTISALATE\OCTOCRYLENE\OXYBENZONE
     Dosage: UNK
     Dates: start: 20180703

REACTIONS (13)
  - Hypoaesthesia [None]
  - Pain [Recovering/Resolving]
  - Emotional distress [None]
  - Fatigue [None]
  - Metastases to bone [Recovering/Resolving]
  - Pain [None]
  - Joint range of motion decreased [None]
  - Product use complaint [None]
  - Accident [None]
  - Insomnia [None]
  - Rotator cuff syndrome [Recovering/Resolving]
  - Mobility decreased [None]
  - Scar [None]

NARRATIVE: CASE EVENT DATE: 20180703
